FAERS Safety Report 9082057 (Version 1)
Quarter: 2013Q1

REPORT INFORMATION
  Report Type: Report from Study
  Country: US (occurrence: US)
  Receive Date: 20130130
  Receipt Date: 20130130
  Transmission Date: 20140127
  Serious: No
  Sender: FDA-Public Use
  Company Number: US-ABBOTT-12P-163-0972633-00

PATIENT
  Age: 54 Year
  Sex: Male

DRUGS (6)
  1. HUMIRA 40 MG/0.8 ML PEN [Suspect]
     Indication: PSORIASIS
     Dates: start: 2010
  2. TRAMADOL [Concomitant]
     Indication: PAIN
     Route: 048
  3. LEXAPRO [Concomitant]
     Indication: AFFECTIVE DISORDER
     Dosage: 20 MG DAILY
     Route: 048
  4. MIRAPEX [Concomitant]
     Indication: RESTLESS LEGS SYNDROME
     Dosage: DAILY
     Route: 048
  5. ASPIRIN [Concomitant]
     Indication: PRODUCT USED FOR UNKNOWN INDICATION
     Dosage: 81 MG DAILY
     Route: 048
  6. UNKNOWN NASAL SPRAY [Concomitant]
     Indication: SEASONAL ALLERGY

REACTIONS (4)
  - Fatigue [Not Recovered/Not Resolved]
  - Impaired healing [Recovered/Resolved]
  - Dry skin [Recovered/Resolved]
  - Dry skin [Not Recovered/Not Resolved]
